FAERS Safety Report 21403396 (Version 1)
Quarter: 2022Q4

REPORT INFORMATION
  Report Type: Spontaneous
  Country: US (occurrence: None)
  Receive Date: 20221001
  Receipt Date: 20221001
  Transmission Date: 20230113
  Serious: Yes (unspecified)
  Sender: FDA-Public Use
  Company Number: None

PATIENT
  Age: 32 Year
  Sex: Female
  Weight: 81 kg

DRUGS (1)
  1. BANANA BOAT (AVOBENZONE\HOMOSALATE\OCTISALATE\OCTOCRYLENE\OXYBENZONE) [Suspect]
     Active Substance: AVOBENZONE\HOMOSALATE\OCTISALATE\OCTOCRYLENE\OXYBENZONE
     Indication: Prophylaxis against solar radiation
     Dosage: OTHER STRENGTH : OZ;?OTHER QUANTITY : 6 OUNCE(S);?FREQUENCY : AS NEEDED;?
     Route: 061
     Dates: start: 20220925, end: 20220925

REACTIONS (3)
  - Chemical burn [None]
  - Application site burn [None]
  - Product complaint [None]

NARRATIVE: CASE EVENT DATE: 20220925
